FAERS Safety Report 15419911 (Version 3)
Quarter: 2019Q1

REPORT INFORMATION
  Report Type: Spontaneous
  Country: FR (occurrence: FR)
  Receive Date: 20180924
  Receipt Date: 20190121
  Transmission Date: 20190417
  Serious: Yes (Other)
  Sender: FDA-Public Use
  Company Number: FR-MYLANLABS-2018M1069245

PATIENT
  Age: 83 Year
  Sex: Male
  Weight: 100 kg

DRUGS (14)
  1. DOLIPRANE [Suspect]
     Active Substance: ACETAMINOPHEN
     Indication: OSTEOARTHRITIS
     Dosage: 3 GRAM, QD
     Route: 048
     Dates: start: 2011
  2. TAREG [Suspect]
     Active Substance: VALSARTAN
     Indication: HYPERTENSION
     Dosage: 80 MILLIGRAM, QD, (BEFORE 2009)
     Route: 048
  3. SOTALEX [Suspect]
     Active Substance: SOTALOL
     Indication: ARRHYTHMIA
     Dosage: 160 MILLIGRAM, QD, (BEFORE 2009)
     Route: 048
  4. LYRICA [Suspect]
     Active Substance: PREGABALIN
     Indication: NEURALGIA
     Dosage: 50 MILLIGRAM, QD
     Route: 048
     Dates: start: 201005
  5. INEGY [Suspect]
     Active Substance: EZETIMIBE\SIMVASTATIN
     Indication: HYPERCHOLESTEROLAEMIA
     Dosage: 50 MILLIGRAM, QD, (10 + 40 MG)
     Route: 048
  6. NOVOMIX [Suspect]
     Active Substance: INSULIN ASPART
     Indication: TYPE 2 DIABETES MELLITUS
     Dosage: 60 INTERNATIONAL UNIT, QD
     Route: 065
     Dates: start: 20170628
  7. IMOVANE [Suspect]
     Active Substance: ZOPICLONE
     Indication: INSOMNIA
     Dosage: 7.5 MILLIGRAM, QD
     Route: 048
     Dates: start: 20130312, end: 20180402
  8. DISCOTRINE [Suspect]
     Active Substance: NITROGLYCERIN
     Indication: CARDIAC FAILURE
     Dosage: 5 MILLIGRAM, QD, (BEFORE 2009)
     Route: 062
  9. PREVISCAN                          /00261401/ [Suspect]
     Active Substance: PENTOXIFYLLINE
     Indication: THROMBOSIS
     Dosage: 20 MILLIGRAM, QD
     Route: 048
     Dates: start: 20111126
  10. CORTANCYL [Suspect]
     Active Substance: PREDNISONE
     Indication: OSTEOARTHRITIS
     Dosage: 60 MILLIGRAM, QD
     Route: 048
     Dates: start: 20180115, end: 2018
  11. MEBEVERINE [Suspect]
     Active Substance: MEBEVERINE
     Indication: ABDOMINAL PAIN
     Dosage: 600 MILLIGRAM, QD
     Route: 048
     Dates: start: 201311
  12. FUROSEMIDE. [Suspect]
     Active Substance: FUROSEMIDE
     Indication: TENSION
     Dosage: 40 MILLIGRAM, QD
     Route: 048
     Dates: start: 20111106
  13. PREVISCAN                          /00261401/ [Suspect]
     Active Substance: PENTOXIFYLLINE
     Indication: ARRHYTHMIA
     Dosage: UNK
  14. INEXIUM                            /01479302/ [Suspect]
     Active Substance: ESOMEPRAZOLE MAGNESIUM
     Indication: GASTRIC PH DECREASED
     Dosage: 40 MILLIGRAM, QD, (STARTED BEFORE 2009)
     Route: 048

REACTIONS (3)
  - Device malfunction [Unknown]
  - Hyperglycaemia [Recovering/Resolving]
  - Wrong technique in device usage process [Unknown]

NARRATIVE: CASE EVENT DATE: 201803
